FAERS Safety Report 9983452 (Version 2)
Quarter: 2014Q1

REPORT INFORMATION
  Report Type: Spontaneous
  Country: MY (occurrence: MY)
  Receive Date: 20140307
  Receipt Date: 20140307
  Transmission Date: 20141002
  Serious: Yes (Hospitalization, Other)
  Sender: FDA-Public Use
  Company Number: MY-ABBVIE-13P-101-1174588-00

PATIENT
  Age: 21 Year
  Sex: Female

DRUGS (3)
  1. HUMIRA [Suspect]
     Indication: INFLAMMATORY BOWEL DISEASE
     Dosage: FIRST LOADING DOSE
     Route: 058
     Dates: start: 20131107, end: 20131107
  2. HUMIRA [Suspect]
     Dosage: SECOND LOADING DOSE
     Route: 058
     Dates: start: 20131121, end: 20131121
  3. HUMIRA [Suspect]
     Route: 058

REACTIONS (6)
  - Anal fissure [Recovering/Resolving]
  - Arthralgia [Recovering/Resolving]
  - Infectious colitis [Unknown]
  - Anal abscess [Recovering/Resolving]
  - Diarrhoea [Recovering/Resolving]
  - Abdominal pain [Recovering/Resolving]
